FAERS Safety Report 24249394 (Version 2)
Quarter: 2024Q3

REPORT INFORMATION
  Report Type: Spontaneous
  Country: NZ (occurrence: NZ)
  Receive Date: 20240826
  Receipt Date: 20240905
  Transmission Date: 20241017
  Serious: Yes (Other)
  Sender: NOVARTIS
  Company Number: NZ-002147023-NVSC2024NZ168657

PATIENT
  Age: 73 Year
  Sex: Male

DRUGS (2)
  1. ELTROMBOPAG [Suspect]
     Active Substance: ELTROMBOPAG
     Indication: Immune thrombocytopenia
     Dosage: UNK
     Route: 065
  2. MYCOPHENOLIC ACID [Concomitant]
     Active Substance: MYCOPHENOLIC ACID
     Indication: Immune thrombocytopenia
     Dosage: 500 MG, BID
     Route: 048

REACTIONS (3)
  - Platelet count abnormal [Unknown]
  - Immune thrombocytopenia [Unknown]
  - Drug withdrawal syndrome [Unknown]
